FAERS Safety Report 5953406-3 (Version None)
Quarter: 2008Q4

REPORT INFORMATION
  Report Type: 
  Country: None (occurrence: None)
  Receive Date: 20081114
  Receipt Date: 20081105
  Transmission Date: 20090506
  Serious: Yes (Hospitalization)
  Sender: FDA-Public Use
  Company Number: FR-MERCK-0811FRA00017

PATIENT
  Age: 18 Year
  Sex: Female

DRUGS (2)
  1. PRIMAXIN [Suspect]
     Indication: STAPHYLOCOCCAL INFECTION
     Route: 042
     Dates: start: 20080715, end: 20080728
  2. RITUXIMAB [Suspect]
     Indication: HERPES SIMPLEX
     Route: 051
     Dates: start: 20080624, end: 20080708

REACTIONS (1)
  - ENCEPHALITIS [None]
